FAERS Safety Report 16494691 (Version 1)
Quarter: 2019Q2

REPORT INFORMATION
  Report Type: Spontaneous
  Country: None (occurrence: US)
  Receive Date: 20190628
  Receipt Date: 20190628
  Transmission Date: 20190711
  Serious: No
  Sender: FDA-Public Use
  Company Number: US-LEADING PHARMA, LLC-2069759

PATIENT
  Sex: Female

DRUGS (1)
  1. LORAZEPAM. [Suspect]
     Active Substance: LORAZEPAM
     Indication: ANXIETY
     Dates: start: 20190523, end: 20190527

REACTIONS (4)
  - Abdominal discomfort [Recovered/Resolved]
  - Drug ineffective [None]
  - Headache [Recovered/Resolved]
  - Insomnia [Recovered/Resolved]
